FAERS Safety Report 5834784-2 (Version None)
Quarter: 2008Q3

REPORT INFORMATION
  Report Type: 
  Country: None (occurrence: None)
  Receive Date: 20080804
  Receipt Date: 20080724
  Transmission Date: 20090109
  Serious: Yes (Other)
  Sender: FDA-Public Use
  Company Number: 163-21880-08070837

PATIENT
  Age: 65 Year
  Sex: Male
  Weight: 75 kg

DRUGS (6)
  1. REVLIMID [Suspect]
     Indication: MULTIPLE MYELOMA
     Dosage: 25 MG, ON DAYS 1-28, ORAL; 25 MG, ON DAYS 1-28, ORAL
     Route: 048
     Dates: start: 20060511, end: 20060607
  2. REVLIMID [Suspect]
     Indication: MULTIPLE MYELOMA
     Dosage: 25 MG, ON DAYS 1-28, ORAL; 25 MG, ON DAYS 1-28, ORAL
     Route: 048
     Dates: start: 20060615
  3. REVLIMID [Suspect]
     Indication: MULTIPLE MYELOMA
     Dosage: 25 MG, ON DAYS 1-28, ORAL
     Route: 048
     Dates: start: 20060223
  4. DEXAMETHASONE TAB [Suspect]
     Indication: MULTIPLE MYELOMA
     Dosage: SEE IMAGE
     Route: 048
     Dates: start: 20060511, end: 20060530
  5. DEXAMETHASONE TAB [Suspect]
     Indication: MULTIPLE MYELOMA
     Dosage: SEE IMAGE
     Route: 048
     Dates: start: 20060223
  6. DEXAMETHASONE TAB [Suspect]
     Indication: MULTIPLE MYELOMA
     Dosage: SEE IMAGE
     Route: 048
     Dates: start: 20060615

REACTIONS (4)
  - DISEASE PROGRESSION [None]
  - HALO VISION [None]
  - VISION BLURRED [None]
  - VISUAL BRIGHTNESS [None]
